FAERS Safety Report 14408740 (Version 1)
Quarter: 2018Q1

REPORT INFORMATION
  Report Type: Spontaneous
  Country: US (occurrence: US)
  Receive Date: 20180119
  Receipt Date: 20180119
  Transmission Date: 20180509
  Serious: Yes (Other)
  Sender: FDA-Public Use
  Company Number: US-JNJFOC-20171133022

PATIENT
  Sex: Female
  Weight: 20.87 kg

DRUGS (2)
  1. RISPERDAL [Suspect]
     Active Substance: RISPERIDONE
     Indication: SLEEP DISORDER
     Dosage: 2-3 ML SUSPENSION, 6 MONTHS AGO
     Route: 048
     Dates: start: 2017
  2. RISPERDAL [Suspect]
     Active Substance: RISPERIDONE
     Indication: SLEEP DISORDER
     Dosage: 2-3 ML SUSPENSION, 6 MONTHS AGO
     Route: 048

REACTIONS (4)
  - Off label use [Unknown]
  - Seizure [Unknown]
  - Product use in unapproved indication [Unknown]
  - Respiratory disorder [Unknown]

NARRATIVE: CASE EVENT DATE: 2017
